FAERS Safety Report 9839898 (Version 2)
Quarter: 2014Q1

REPORT INFORMATION
  Report Type: Spontaneous
  Country: US (occurrence: US)
  Receive Date: 20140124
  Receipt Date: 20140124
  Transmission Date: 20141002
  Serious: Yes (Disabling)
  Sender: FDA-Public Use
  Company Number: US-ROCHE-1294256

PATIENT
  Sex: Female

DRUGS (6)
  1. AVASTIN [Suspect]
     Indication: OVARIAN CANCER
     Dosage: ONCE
     Route: 042
     Dates: start: 20130823, end: 20130823
  2. GEMZAR [Concomitant]
     Route: 042
     Dates: start: 20130823, end: 20131122
  3. CARBOPLATIN [Concomitant]
     Route: 042
     Dates: start: 20130823, end: 20131122
  4. ALOXI [Concomitant]
     Route: 042
     Dates: start: 20130823, end: 20131122
  5. ZOFRAN [Concomitant]
     Route: 042
     Dates: start: 20130823, end: 20131122
  6. DECADRON [Concomitant]
     Route: 042
     Dates: start: 20130823, end: 20131122

REACTIONS (2)
  - Surgical failure [Unknown]
  - Abdominal hernia [Not Recovered/Not Resolved]
